FAERS Safety Report 22134224 (Version 2)
Quarter: 2023Q2

REPORT INFORMATION
  Report Type: Spontaneous
  Country: GB (occurrence: GB)
  Receive Date: 20230324
  Receipt Date: 20230409
  Transmission Date: 20230721
  Serious: Yes (Hospitalization, Other)
  Sender: FDA-Public Use
  Company Number: GB-MLMSERVICE-20230308-4144194-2

PATIENT
  Sex: Male

DRUGS (2)
  1. ACETAMINOPHEN [Suspect]
     Active Substance: ACETAMINOPHEN
     Indication: Product used for unknown indication
     Dosage: 25 GRAM 1 TOTAL (48 HOURS)
     Route: 048
  2. ACETYLCYSTEINE [Suspect]
     Active Substance: ACETYLCYSTEINE
     Indication: Toxicity to various agents
     Dosage: 5 DOSAGE FORM TOTAL
     Route: 065

REACTIONS (7)
  - Acute kidney injury [Recovered/Resolved]
  - Renal impairment [Recovered/Resolved]
  - Nephropathy toxic [Recovered/Resolved]
  - Blood creatinine increased [Recovered/Resolved]
  - Hepatic function abnormal [Recovered/Resolved]
  - Toxicity to various agents [Recovered/Resolved]
  - Intentional overdose [Recovered/Resolved]
